FAERS Safety Report 6895638-6 (Version None)
Quarter: 2010Q3

REPORT INFORMATION
  Report Type: 
  Country: None (occurrence: None)
  Receive Date: 20100802
  Receipt Date: 20100729
  Transmission Date: 20110219
  Serious: Yes (Other)
  Sender: FDA-Public Use
  Company Number: US-BRISTOL-MYERS SQUIBB COMPANY-15216930

PATIENT
  Age: 52 Year
  Sex: Female
  Weight: 117 kg

DRUGS (6)
  1. ABILIFY [Suspect]
     Indication: BIPOLAR II DISORDER
     Dosage: SINCE 2002-2003
  2. SYNTHROID [Concomitant]
  3. CONCERTA [Concomitant]
     Indication: ATTENTION DEFICIT/HYPERACTIVITY DISORDER
  4. NEXIUM [Concomitant]
     Indication: GASTROOESOPHAGEAL REFLUX DISEASE
  5. KLONOPIN [Concomitant]
  6. VITAMIN D [Concomitant]

REACTIONS (2)
  - DEMENTIA [None]
  - NEUROPATHY PERIPHERAL [None]
